FAERS Safety Report 10264865 (Version 1)
Quarter: 2014Q2

REPORT INFORMATION
  Report Type: Spontaneous
  Country: CA (occurrence: CA)
  Receive Date: 20140627
  Receipt Date: 20140627
  Transmission Date: 20141212
  Serious: Yes (Disabling)
  Sender: FDA-Public Use
  Company Number: CA-NOVOPROD-413976

PATIENT
  Age: 54 Year
  Sex: Male
  Weight: 143.7 kg

DRUGS (9)
  1. VICTOZA [Suspect]
     Indication: DIABETES MELLITUS
     Dosage: UNK
     Route: 065
     Dates: start: 2008, end: 2014
  2. REVLIMID [Suspect]
     Indication: PLASMA CELL MYELOMA
     Dosage: 25 MG DAILY FOR 21DAYS OF 28 DAYS
     Route: 048
     Dates: start: 201309, end: 201401
  3. ZOMETA [Concomitant]
     Dosage: UNK
     Route: 065
     Dates: end: 2013
  4. METFORMIN [Concomitant]
     Indication: DIABETES MELLITUS
     Dosage: UNK
     Route: 065
     Dates: start: 2000
  5. RAMIPRIL [Concomitant]
     Indication: BLOOD PRESSURE
     Dosage: UNK
     Route: 065
     Dates: start: 2005
  6. CRESTOR [Concomitant]
     Indication: BLOOD CHOLESTEROL
     Dosage: UNK
     Route: 065
     Dates: start: 2004
  7. SYNTHROID [Concomitant]
     Dosage: UNK
     Route: 065
  8. ATENOLOL [Concomitant]
     Dosage: UNK
     Route: 065
     Dates: start: 2005
  9. CO Q 10                            /00517201/ [Concomitant]
     Dosage: UNK
     Route: 065

REACTIONS (3)
  - Tooth loss [Not Recovered/Not Resolved]
  - Diarrhoea [Recovered/Resolved]
  - Weight decreased [Recovered/Resolved]
